FAERS Safety Report 4989905-0 (Version None)
Quarter: 2006Q2

REPORT INFORMATION
  Report Type: 
  Country: None (occurrence: None)
  Receive Date: 20060503
  Receipt Date: 20060421
  Transmission Date: 20061013
  Serious: Yes (Other)
  Sender: FDA-Public Use
  Company Number: FR-BRISTOL-MYERS SQUIBB COMPANY-13357397

PATIENT
  Age: 67 Year
  Sex: Female

DRUGS (2)
  1. GLUCOPHAGE [Suspect]
     Route: 048
  2. ART 50 [Suspect]

REACTIONS (2)
  - DIARRHOEA [None]
  - ENDOSCOPY GASTROINTESTINAL ABNORMAL [None]
